FAERS Safety Report 22005370 (Version 1)
Quarter: 2023Q1

REPORT INFORMATION
  Report Type: Spontaneous
  Country: US (occurrence: None)
  Receive Date: 20230216
  Receipt Date: 20230216
  Transmission Date: 20230418
  Serious: No
  Sender: FDA-Public Use
  Company Number: None

PATIENT
  Sex: Female

DRUGS (2)
  1. FLUOROMETHOLONE [Suspect]
     Active Substance: FLUOROMETHOLONE
     Indication: Lacrimation increased
     Dosage: OTHER QUANTITY : 1 DROP(S);?FREQUENCY : 3 TIMES A DAY;?
     Route: 047
     Dates: start: 20230208, end: 20230211
  2. FLUOROMETHOLONE [Suspect]
     Active Substance: FLUOROMETHOLONE
     Indication: Eye inflammation

REACTIONS (2)
  - Headache [None]
  - Instillation site pain [None]
